FAERS Safety Report 7402686-6 (Version None)
Quarter: 2011Q2

REPORT INFORMATION
  Report Type: 
  Country: None (occurrence: None)
  Receive Date: 20110408
  Receipt Date: 20110406
  Transmission Date: 20111010
  Serious: Yes (Death)
  Sender: FDA-Public Use
  Company Number: PL-ABBOTT-11P-129-0707989-00

PATIENT
  Sex: Male
  Weight: 96 kg

DRUGS (6)
  1. HUMIRA [Suspect]
     Indication: SPONDYLITIS
     Route: 058
     Dates: start: 20110117, end: 20110117
  2. DICLOFENAC [Concomitant]
     Indication: SPONDYLITIS
     Dosage: 150 MG DAILY
     Route: 048
     Dates: start: 20100601
  3. NEBIVOLOL [Concomitant]
     Indication: HYPERTENSION
     Dosage: 5 MG DAILY
     Route: 048
     Dates: start: 20101213
  4. POLPRAZOL [Concomitant]
     Indication: PRODUCT USED FOR UNKNOWN INDICATION
     Dosage: 20 MG DAILY
     Route: 048
     Dates: start: 20100601
  5. AMITORIDE + HYDROCHLOROTHIAZIDE (TIALORIDE MITE) [Concomitant]
     Indication: HYPERTENSION
     Dosage: 1 TABLET DAILY
     Dates: start: 20101213
  6. AMLODIPINE + PERINDOPRIL (CO-PRESTARIUM) [Concomitant]
     Indication: HYPERTENSION
     Dosage: 10 MG DAILY
     Route: 048
     Dates: start: 20100801

REACTIONS (1)
  - CEREBROVASCULAR ACCIDENT [None]
